FAERS Safety Report 9329918 (Version 1)
Quarter: 2013Q2

REPORT INFORMATION
  Report Type: Spontaneous
  Country: US (occurrence: US)
  Receive Date: 20130604
  Receipt Date: 20130604
  Transmission Date: 20140414
  Serious: No
  Sender: FDA-Public Use
  Company Number: US-SANOFI-AVENTIS-2012SA052503

PATIENT
  Sex: 0

DRUGS (2)
  1. LANTUS [Suspect]
     Dosage: DOSAGE MENTIONED AS 30-40 UNITS
     Route: 058
  2. LANTUS [Suspect]
     Dosage: WITHIN A YEAR DOSE INCREASED TO 140 DOSE:140 UNIT(S)
     Route: 058

REACTIONS (2)
  - Anti-insulin antibody increased [Unknown]
  - Drug ineffective [Unknown]
